FAERS Safety Report 20771631 (Version 1)
Quarter: 2022Q2

REPORT INFORMATION
  Report Type: Spontaneous
  Country: AE (occurrence: AE)
  Receive Date: 20220430
  Receipt Date: 20220430
  Transmission Date: 20220721
  Serious: Yes (Hospitalization)
  Sender: FDA-Public Use
  Company Number: AE-LUPIN PHARMACEUTICALS INC.-2022-06251

PATIENT
  Age: 10 Year
  Sex: Female

DRUGS (1)
  1. CEFTRIAXONE [Suspect]
     Active Substance: CEFTRIAXONE
     Indication: Otitis media acute
     Dosage: UNK (THERAPY CONTINUED, AND SHE RECEIVED CEFTRIAXONE FOR A TOTAL OF 6 WEEKS)
     Route: 042

REACTIONS (1)
  - Treatment failure [Unknown]
